FAERS Safety Report 15234980 (Version 1)
Quarter: 2018Q3

REPORT INFORMATION
  Report Type: Spontaneous
  Country: DE (occurrence: DE)
  Receive Date: 20180803
  Receipt Date: 20180803
  Transmission Date: 20181010
  Serious: Yes (Other)
  Sender: FDA-Public Use
  Company Number: DE-TEVA-2018-DE-934252

PATIENT
  Age: 16 Year
  Sex: Female
  Weight: 58 kg

DRUGS (5)
  1. LAMOTRIGINE. [Interacting]
     Active Substance: LAMOTRIGINE
     Route: 065
  2. LAMOTRIGINE. [Suspect]
     Active Substance: LAMOTRIGINE
     Dosage: 1 MG/KG DAILY;
     Route: 048
     Dates: start: 201701, end: 201705
  3. VALPROATE [Interacting]
     Active Substance: VALPROIC ACID
     Dosage: 10.7 MG/KG DAILY;
     Route: 064
     Dates: start: 201701, end: 201705
  4. LEVETIRACETAM. [Interacting]
     Active Substance: LEVETIRACETAM
     Dosage: 900 MILLIGRAM DAILY;
     Route: 065
  5. ORFIRIL LONG [Interacting]
     Active Substance: VALPROIC ACID
     Dosage: 750 MILLIGRAM DAILY; 300?0?450
     Route: 048

REACTIONS (7)
  - Fatigue [Recovered/Resolved]
  - Prothrombin time prolonged [Recovered/Resolved]
  - Carnitine deficiency [Recovered/Resolved]
  - Alopecia [Recovered/Resolved]
  - Drug interaction [Recovered/Resolved]
  - Decreased appetite [Recovered/Resolved]
  - Thrombocytopenia [Recovered/Resolved]

NARRATIVE: CASE EVENT DATE: 2017
